FAERS Safety Report 25529245 (Version 1)
Quarter: 2025Q3

REPORT INFORMATION
  Report Type: Spontaneous
  Country: US (occurrence: US)
  Receive Date: 20250708
  Receipt Date: 20250708
  Transmission Date: 20251020
  Serious: Yes (Hospitalization, Other)
  Sender: NORDIC PHARMA
  Company Number: US-NORDIC PHARMA, INC-2025US003406

PATIENT

DRUGS (1)
  1. TRANEXAMIC ACID [Suspect]
     Active Substance: TRANEXAMIC ACID
     Indication: Heavy menstrual bleeding

REACTIONS (6)
  - Blindness unilateral [Unknown]
  - Hypoaesthesia [Unknown]
  - Nausea [Unknown]
  - Hyperhidrosis [Unknown]
  - Migraine [Unknown]
  - Off label use [Unknown]
